FAERS Safety Report 4496512-5 (Version None)
Quarter: 2004Q3

REPORT INFORMATION
  Report Type: 
  Country: None (occurrence: None)
  Receive Date: 20040923
  Receipt Date: 20030812
  Transmission Date: 20050211
  Serious: Yes (Other)
  Sender: FDA-Public Use
  Company Number: 2003034400

PATIENT
  Age: 17 Month
  Sex: Female
  Weight: 13.6079 kg

DRUGS (1)
  1. ZYRTEC [Suspect]
     Indication: ILL-DEFINED DISORDER
     Dosage: 4 ML (BID), ORAL
     Route: 048
     Dates: start: 20030808, end: 20030810

REACTIONS (6)
  - EATING DISORDER [None]
  - FEELING ABNORMAL [None]
  - IRRITABILITY [None]
  - MEDICATION ERROR [None]
  - SOMNOLENCE [None]
  - VOMITING [None]
